FAERS Safety Report 18903453 (Version 1)
Quarter: 2021Q1

REPORT INFORMATION
  Report Type: Spontaneous
  Country: US (occurrence: US)
  Receive Date: 20210216
  Receipt Date: 20210216
  Transmission Date: 20210420
  Serious: Yes (Hospitalization, Disabling, Other)
  Sender: FDA-Public Use
  Company Number: None

PATIENT
  Age: 37 Year
  Sex: Male
  Weight: 87.75 kg

DRUGS (1)
  1. CHLORHEXIDINE GLUCONATE ORAL RINSE, 0.12% [Suspect]
     Active Substance: CHLORHEXIDINE GLUCONATE
     Indication: ANTIBIOTIC PROPHYLAXIS
     Route: 048
     Dates: start: 20200828, end: 20201130

REACTIONS (4)
  - Impaired healing [None]
  - Bone loss [None]
  - Postoperative wound infection [None]
  - Nerve injury [None]

NARRATIVE: CASE EVENT DATE: 20200905
